FAERS Safety Report 4394580-2 (Version None)
Quarter: 2004Q3

REPORT INFORMATION
  Report Type: 
  Country: None (occurrence: None)
  Receive Date: 20040712
  Receipt Date: 20040621
  Transmission Date: 20050211
  Serious: Yes (Life-Threatening)
  Sender: FDA-Public Use
  Company Number: JP-ROCHE-371687

PATIENT
  Age: 83 Year
  Sex: Female
  Weight: 64.2 kg

DRUGS (10)
  1. XELODA [Suspect]
     Indication: BREAST CANCER
     Route: 048
     Dates: start: 20040209, end: 20040301
  2. XELODA [Suspect]
     Route: 048
     Dates: start: 20040308, end: 20040329
  3. XELODA [Suspect]
     Route: 048
     Dates: start: 20040405, end: 20040426
  4. XELODA [Suspect]
     Route: 048
     Dates: start: 20040514, end: 20040526
  5. MEDROXYPROGESTERONE ACETATE [Concomitant]
     Indication: BREAST CANCER
     Route: 048
     Dates: start: 20040203
  6. SELBEX [Concomitant]
     Indication: GASTRITIS
     Route: 048
     Dates: start: 20040203
  7. MAGNESIUM OXIDE [Concomitant]
     Indication: CONSTIPATION
     Route: 048
     Dates: start: 20040203, end: 20040528
  8. MOBIC [Concomitant]
     Indication: CHEST PAIN
     Route: 048
     Dates: start: 20040213
  9. LASIX [Concomitant]
     Indication: PLEURAL EFFUSION
     Route: 048
     Dates: start: 20040417, end: 20040611
  10. ARIMIDEX [Concomitant]
     Dates: start: 20020218, end: 20040202

REACTIONS (2)
  - HYPERKALAEMIA [None]
  - RENAL IMPAIRMENT [None]
